FAERS Safety Report 4864144-2 (Version None)
Quarter: 2005Q4

REPORT INFORMATION
  Report Type: 
  Country: None (occurrence: None)
  Receive Date: 20051222
  Receipt Date: 20051217
  Transmission Date: 20060501
  Serious: Yes (Hospitalization)
  Sender: FDA-Public Use
  Company Number: 05-NEO-247

PATIENT
  Age: 57 Year
  Sex: Female

DRUGS (7)
  1. LAMOTRIGINE [Suspect]
     Indication: CONVULSION
     Route: 048
     Dates: end: 20040401
  2. VALPROATE SODIUM [Concomitant]
     Indication: CONVULSION
     Dosage: 2400MG PER DAY
     Route: 048
     Dates: start: 20031101
  3. CLOBAZAM [Concomitant]
     Indication: CONVULSION
     Dosage: 10MG PER DAY
     Route: 048
     Dates: start: 20031101
  4. PHENYTOIN [Concomitant]
     Indication: CONVULSION
     Dosage: 425MG PER DAY
     Route: 048
     Dates: start: 20031101, end: 20040419
  5. PARACETAMOL [Concomitant]
     Dosage: 4G PER DAY
     Route: 048
  6. LOPERAMIDE [Concomitant]
     Dosage: 2MG AS REQUIRED
     Route: 048
  7. EMOLLIENT [Concomitant]
     Indication: ECZEMA
     Route: 061

REACTIONS (5)
  - CYANOSIS [None]
  - DYSPNOEA [None]
  - MALAISE [None]
  - PNEUMONITIS [None]
  - TACHYCARDIA [None]
